FAERS Safety Report 7024551-9 (Version None)
Quarter: 2010Q4

REPORT INFORMATION
  Report Type: 
  Country: None (occurrence: None)
  Receive Date: 20101001
  Receipt Date: 20100923
  Transmission Date: 20110411
  Serious: Yes (Other)
  Sender: FDA-Public Use
  Company Number: US-JNJCH-2010022006

PATIENT
  Sex: Female

DRUGS (1)
  1. LISTERINE WHITENING VIBRANT WHITE PRE-BRUSH RINSE [Suspect]
     Indication: DENTAL DISORDER PROPHYLAXIS
     Dosage: TEXT:CAPFUL ONCE DAILY
     Route: 048
     Dates: start: 20100901, end: 20100923

REACTIONS (2)
  - AGEUSIA [None]
  - STOMATITIS [None]
